FAERS Safety Report 23741711 (Version 1)
Quarter: 2024Q2

REPORT INFORMATION
  Report Type: Spontaneous
  Country: US (occurrence: US)
  Receive Date: 20240415
  Receipt Date: 20240415
  Transmission Date: 20240716
  Serious: Yes (Other)
  Sender: FDA-Public Use
  Company Number: US-HIKMA PHARMACEUTICALS-US-H14001-24-02896

PATIENT
  Age: 32 Year
  Sex: Male

DRUGS (3)
  1. BLEOMYCIN [Suspect]
     Active Substance: BLEOMYCIN SULFATE
     Indication: Hepatic neoplasm
     Dosage: UNKNOWN, CYCLICAL
     Route: 065
  2. CISPLATIN [Suspect]
     Active Substance: CISPLATIN
     Indication: Hepatic neoplasm
     Dosage: UNKNOWN, CYCLICAL
     Route: 065
  3. ETOPOSIDE [Suspect]
     Active Substance: ETOPOSIDE
     Indication: Hepatic neoplasm
     Dosage: UNKNOWN, CYCLICAL
     Route: 065

REACTIONS (1)
  - Febrile neutropenia [Unknown]
